FAERS Safety Report 6668082-4 (Version None)
Quarter: 2010Q2

REPORT INFORMATION
  Report Type: 
  Country: None (occurrence: None)
  Receive Date: 20100405
  Receipt Date: 20100326
  Transmission Date: 20101027
  Serious: Yes (Other)
  Sender: FDA-Public Use
  Company Number: CH-BRISTOL-MYERS SQUIBB COMPANY-15041056

PATIENT
  Sex: Male

DRUGS (4)
  1. CISPLATIN [Suspect]
     Indication: PINEAL GERMINOMA
  2. ETOPOSIDE [Suspect]
     Indication: PINEAL GERMINOMA
  3. IFOSFAMIDE [Suspect]
     Indication: PINEAL GERMINOMA
  4. RADIATION THERAPY [Suspect]
     Indication: PINEAL GERMINOMA
     Dosage: 1DF: 54GY

REACTIONS (4)
  - ATTENTION DEFICIT/HYPERACTIVITY DISORDER [None]
  - GROWTH HORMONE DEFICIENCY [None]
  - MENTAL IMPAIRMENT [None]
  - TREATMENT NONCOMPLIANCE [None]
